FAERS Safety Report 5771612-8 (Version None)
Quarter: 2008Q2

REPORT INFORMATION
  Report Type: 
  Country: None (occurrence: None)
  Receive Date: 20080612
  Receipt Date: 20080612
  Transmission Date: 20081010
  Serious: Yes (Hospitalization)
  Sender: FDA-Public Use
  Company Number: None

PATIENT
  Age: 63 Year

DRUGS (2)
  1. DIGOXIN [Suspect]
     Indication: HYPERKALAEMIA
     Dosage: 0.125 MG EVERY DAY PO
     Route: 048
     Dates: start: 20001208, end: 20080611
  2. DIGOXIN [Suspect]
     Indication: THERAPEUTIC AGENT TOXICITY
     Dosage: 0.125 MG EVERY DAY PO
     Route: 048
     Dates: start: 20001208, end: 20080611

REACTIONS (8)
  - ATRIAL FIBRILLATION [None]
  - BLOOD CREATININE INCREASED [None]
  - BLOOD UREA INCREASED [None]
  - BRADYCARDIA [None]
  - CELLULITIS [None]
  - HYPERGLYCAEMIA [None]
  - HYPERKALAEMIA [None]
  - THERAPEUTIC AGENT TOXICITY [None]
